FAERS Safety Report 22326923 (Version 1)
Quarter: 2023Q2

REPORT INFORMATION
  Report Type: Spontaneous
  Country: US (occurrence: US)
  Receive Date: 20230516
  Receipt Date: 20230516
  Transmission Date: 20230722
  Serious: No
  Sender: FDA-Public Use
  Company Number: US-RADIUS HEALTH INC.-2022US003003

PATIENT
  Age: 61 Year
  Sex: Female
  Weight: 91.066 kg

DRUGS (14)
  1. TYMLOS [Suspect]
     Active Substance: ABALOPARATIDE
     Indication: Illness
     Dosage: 80 MICROGRAM, QD
     Route: 058
     Dates: start: 20220616
  2. OMEGA 3-6-9 [BORAGO OFFICINALIS OIL;FISH OIL;LINUM USITATISSIMUM OIL] [Concomitant]
     Indication: Product used for unknown indication
     Dosage: UNK
  3. IRON [Concomitant]
     Active Substance: IRON
     Indication: Product used for unknown indication
  4. WOMENS MULTI ONE A DAY [Concomitant]
     Indication: Product used for unknown indication
     Dosage: DAILY GUMMIES,
  5. HERBALS\TURMERIC [Concomitant]
     Active Substance: HERBALS\TURMERIC
     Indication: Product used for unknown indication
  6. BENADRYL [Concomitant]
     Active Substance: DIPHENHYDRAMINE HYDROCHLORIDE
     Indication: Product used for unknown indication
     Dosage: UNK
  7. DOXYLAMINE SUCCINATE [Concomitant]
     Active Substance: DOXYLAMINE SUCCINATE
     Indication: Product used for unknown indication
  8. MAGNESIUM [Concomitant]
     Active Substance: MAGNESIUM
     Indication: Product used for unknown indication
  9. PRILOSEC [Concomitant]
     Active Substance: OMEPRAZOLE MAGNESIUM
     Indication: Product used for unknown indication
  10. CONCERTA [Concomitant]
     Active Substance: METHYLPHENIDATE HYDROCHLORIDE
     Indication: Product used for unknown indication
     Dosage: 18MG, 24
  11. MIRAPEX [Concomitant]
     Active Substance: PRAMIPEXOLE DIHYDROCHLORIDE
     Indication: Product used for unknown indication
  12. CELECOXIB [Concomitant]
     Active Substance: CELECOXIB
     Indication: Product used for unknown indication
  13. WELLBUTRIN SR [Concomitant]
     Active Substance: BUPROPION HYDROCHLORIDE
     Indication: Product used for unknown indication
     Dosage: 100MG, 12 HR
  14. ALGAECAL PLUS [Concomitant]
     Indication: Product used for unknown indication

REACTIONS (4)
  - Abdominal discomfort [Recovered/Resolved]
  - Dizziness [Recovered/Resolved]
  - Insomnia [Unknown]
  - Product dose omission issue [Recovered/Resolved]

NARRATIVE: CASE EVENT DATE: 20220601
